FAERS Safety Report 8279702-5 (Version None)
Quarter: 2012Q2

REPORT INFORMATION
  Report Type: 
  Country: None (occurrence: None)
  Receive Date: 20120412
  Receipt Date: 20120111
  Transmission Date: 20120825
  Serious: No
  Sender: FDA-Public Use
  Company Number: US-ASTRAZENECA-2010SE07871

PATIENT
  Age: 50 Year
  Sex: Female
  Weight: 64.9 kg

DRUGS (8)
  1. NEXIUM [Suspect]
     Indication: GASTRITIS
     Route: 048
     Dates: start: 20060101, end: 20100201
  2. NEXIUM [Suspect]
     Indication: DIVERTICULITIS
     Route: 048
     Dates: start: 20060101, end: 20100201
  3. PRILOSEC [Suspect]
     Indication: DIVERTICULITIS
     Route: 048
     Dates: start: 20100201
  4. NEXIUM [Suspect]
     Indication: GASTROOESOPHAGEAL REFLUX DISEASE
     Route: 048
     Dates: start: 20060101, end: 20100201
  5. NEXIUM [Suspect]
     Indication: IRRITABLE BOWEL SYNDROME
     Route: 048
     Dates: start: 20060101, end: 20100201
  6. PRILOSEC [Suspect]
     Indication: GASTROOESOPHAGEAL REFLUX DISEASE
     Route: 048
     Dates: start: 20100201
  7. PRILOSEC [Suspect]
     Indication: GASTRITIS
     Route: 048
     Dates: start: 20100201
  8. PRILOSEC [Suspect]
     Indication: IRRITABLE BOWEL SYNDROME
     Route: 048
     Dates: start: 20100201

REACTIONS (5)
  - HEADACHE [None]
  - MALAISE [None]
  - DRUG INEFFECTIVE [None]
  - APHAGIA [None]
  - DRUG DOSE OMISSION [None]
